FAERS Safety Report 25422925 (Version 1)
Quarter: 2025Q2

REPORT INFORMATION
  Report Type: Spontaneous
  Country: US (occurrence: None)
  Receive Date: 20250610
  Receipt Date: 20250610
  Transmission Date: 20250717
  Serious: Yes (Hospitalization)
  Sender: FDA-CTU
  Company Number: None

PATIENT
  Age: 73 Year
  Sex: Male
  Weight: 88.9 kg

DRUGS (1)
  1. BREYANZI [Suspect]
     Active Substance: LISOCABTAGENE MARALEUCEL
     Indication: Diffuse large B-cell lymphoma
     Route: 042

REACTIONS (5)
  - Disease recurrence [None]
  - Diffuse large B-cell lymphoma [None]
  - Cytokine release syndrome [None]
  - Pyrexia [None]
  - Immune effector cell-associated neurotoxicity syndrome [None]
